FAERS Safety Report 8513876 (Version 3)
Quarter: 2013Q2

REPORT INFORMATION
  Report Type: Report from Study
  Country: DE (occurrence: DE)
  Receive Date: 20120416
  Receipt Date: 20130521
  Transmission Date: 20140414
  Serious: Yes (Hospitalization)
  Sender: FDA-Public Use
  Company Number: DE-ROCHE-1056592

PATIENT
  Age: 82 Year
  Sex: Male
  Weight: 84 kg

DRUGS (7)
  1. TOCILIZUMAB [Suspect]
     Indication: RHEUMATOID ARTHRITIS
     Route: 042
     Dates: start: 20110922, end: 201204
  2. LEFLUNOMIDE [Suspect]
     Indication: RHEUMATOID ARTHRITIS
     Route: 065
     Dates: start: 201107, end: 201110
  3. LEFLUNOMIDE [Suspect]
     Route: 065
     Dates: end: 201203
  4. METHOTREXATE [Suspect]
     Indication: RHEUMATOID ARTHRITIS
     Route: 065
  5. PREDNISOLON [Concomitant]
     Route: 065
     Dates: start: 201107
  6. RAMIPRIL [Concomitant]
     Route: 065
  7. DEKRISTOL [Concomitant]
     Route: 065
     Dates: start: 201205

REACTIONS (2)
  - Pleural effusion [Not Recovered/Not Resolved]
  - Pleural neoplasm [Unknown]
